FAERS Safety Report 9267499 (Version 1)
Quarter: 2013Q2

REPORT INFORMATION
  Report Type: Spontaneous
  Country: US (occurrence: US)
  Receive Date: 20130502
  Receipt Date: 20130502
  Transmission Date: 20140414
  Serious: Yes (Death)
  Sender: FDA-Public Use
  Company Number: US-GLAXOSMITHKLINE-A1021324A

PATIENT
  Sex: Male

DRUGS (1)
  1. ARZERRA [Suspect]
     Indication: CHRONIC LYMPHOCYTIC LEUKAEMIA
     Route: 042

REACTIONS (7)
  - Death [Fatal]
  - Hyperhidrosis [Unknown]
  - Rash [Unknown]
  - Abdominal distension [Recovered/Resolved]
  - Abdominal pain [Unknown]
  - Oedema peripheral [Not Recovered/Not Resolved]
  - Bone marrow disorder [Not Recovered/Not Resolved]
